FAERS Safety Report 10344831 (Version 1)
Quarter: 2014Q3

REPORT INFORMATION
  Report Type: Spontaneous
  Country: FR (occurrence: FR)
  Receive Date: 20140728
  Receipt Date: 20140728
  Transmission Date: 20150326
  Serious: Yes (Death, Other)
  Sender: FDA-Public Use
  Company Number: FR-JNJFOC-20140714911

PATIENT
  Sex: Female

DRUGS (6)
  1. TRIAFEMI [Suspect]
     Active Substance: ETHINYL ESTRADIOL\NORGESTREL
     Indication: CHEMICAL CONTRACEPTION
     Route: 048
  2. ORTHO EVRA [Suspect]
     Active Substance: ETHINYL ESTRADIOL\NORELGESTROMIN
     Indication: CHEMICAL CONTRACEPTION
     Route: 062
  3. EFFIPREV [Suspect]
     Active Substance: ETHINYL ESTRADIOL\NORGESTIMATE
     Indication: CHEMICAL CONTRACEPTION
     Route: 048
  4. NORETHINDRONE AND ETHINYL ESTRADIOL [Suspect]
     Active Substance: ETHINYL ESTRADIOL\NORETHINDRONE
     Indication: CHEMICAL CONTRACEPTION
     Route: 048
  5. NORETHINDRONE AND ETHINYL ESTRADIOL [Suspect]
     Active Substance: ETHINYL ESTRADIOL\NORETHINDRONE
     Indication: CHEMICAL CONTRACEPTION
     Route: 048
  6. TRICILEST [Suspect]
     Active Substance: ETHINYL ESTRADIOL\NORGESTIMATE
     Indication: CHEMICAL CONTRACEPTION
     Route: 048

REACTIONS (4)
  - Cerebral venous thrombosis [Fatal]
  - Cerebral ischaemia [Fatal]
  - Myocardial infarction [Fatal]
  - Pulmonary embolism [Fatal]

NARRATIVE: CASE EVENT DATE: 2012
